FAERS Safety Report 4946131-9 (Version None)
Quarter: 2006Q1

REPORT INFORMATION
  Report Type: 
  Country: None (occurrence: None)
  Receive Date: 20060316
  Receipt Date: 20050629
  Transmission Date: 20060701
  Serious: Yes (Hospitalization, Disabling)
  Sender: FDA-Public Use
  Company Number: US-MERCK-0506USA04331

PATIENT
  Age: 61 Year
  Sex: Female
  Weight: 68 kg

DRUGS (1)
  1. VIOXX [Suspect]
     Indication: ARTHRITIS
     Route: 048
     Dates: start: 20030216, end: 20030224

REACTIONS (18)
  - ACUTE MYOCARDIAL INFARCTION [None]
  - ANAEMIA [None]
  - ASTHENIA [None]
  - ATELECTASIS [None]
  - CARDIAC FAILURE CONGESTIVE [None]
  - CARDIAC PACEMAKER INSERTION [None]
  - CORONARY ARTERY DISEASE [None]
  - COUGH [None]
  - DIARRHOEA [None]
  - DYSPNOEA EXERTIONAL [None]
  - EJECTION FRACTION DECREASED [None]
  - GALLBLADDER DISORDER [None]
  - GASTROINTESTINAL HAEMORRHAGE [None]
  - HYPOTENSION [None]
  - NAUSEA [None]
  - PULMONARY OEDEMA [None]
  - RENAL FAILURE ACUTE [None]
  - VOMITING [None]
